FAERS Safety Report 5501150-9 (Version None)
Quarter: 2007Q4

REPORT INFORMATION
  Report Type: 
  Country: None (occurrence: None)
  Receive Date: 20071029
  Receipt Date: 20071022
  Transmission Date: 20080405
  Serious: Yes (Hospitalization)
  Sender: FDA-Public Use
  Company Number: DE-BOEHRINGER INGELHEIM PHARMACEUTICALS, INC.-2007-DE-06231DE

PATIENT
  Age: 36 Year
  Sex: Male
  Weight: 120 kg

DRUGS (1)
  1. ATROVENT [Suspect]
     Dates: start: 20070602

REACTIONS (4)
  - CONSTIPATION [None]
  - DIARRHOEA [None]
  - PYREXIA [None]
  - SWELLING FACE [None]
